FAERS Safety Report 5167667-4 (Version None)
Quarter: 2006Q4

REPORT INFORMATION
  Report Type: 
  Country: None (occurrence: None)
  Receive Date: 20061201
  Receipt Date: 20061201
  Transmission Date: 20070319
  Serious: Yes (Death)
  Sender: FDA-Public Use
  Company Number: None

PATIENT
  Age: 72 Year
  Sex: Male
  Weight: 80 kg

DRUGS (11)
  1. NIFEDIPINE HCL [Suspect]
     Indication: HYPERTENSION
     Dosage: PO
     Route: 048
  2. SINEMET [Concomitant]
  3. OMEPRAZOLE [Concomitant]
  4. NOVOLIN [Concomitant]
  5. SEROQUEL [Concomitant]
  6. PLETAL [Concomitant]
  7. DARVOCET [Concomitant]
  8. CATAPRES [Concomitant]
  9. LOPRESSOR [Concomitant]
  10. COLACE [Concomitant]
  11. PREDNISONE TAB [Concomitant]

REACTIONS (11)
  - ANGIONEUROTIC OEDEMA [None]
  - ANOXIC ENCEPHALOPATHY [None]
  - BRADYCARDIA [None]
  - CONVULSION [None]
  - DIALYSIS [None]
  - ELECTROMECHANICAL DISSOCIATION [None]
  - FACE OEDEMA [None]
  - INTUBATION COMPLICATION [None]
  - LOSS OF CONSCIOUSNESS [None]
  - OBSTRUCTIVE AIRWAYS DISORDER [None]
  - RENAL FAILURE CHRONIC [None]
